FAERS Safety Report 5411085-8 (Version None)
Quarter: 2007Q3

REPORT INFORMATION
  Report Type: 
  Country: None (occurrence: None)
  Receive Date: 20070810
  Receipt Date: 20070807
  Transmission Date: 20080115
  Serious: Yes (Hospitalization)
  Sender: FDA-Public Use
  Company Number: AT-ASTRAZENECA-2007PK01648

PATIENT
  Age: 24832 Day
  Sex: Female
  Weight: 100 kg

DRUGS (5)
  1. ARIMIDEX [Suspect]
     Indication: BREAST CANCER FEMALE
     Route: 048
     Dates: start: 20060729, end: 20070616
  2. TRIAMTERENE AND HYDROCHLOROTHIAZIDE [Concomitant]
     Indication: HYPERTENSION
  3. CALCIUM VIV D 3 [Concomitant]
     Indication: OSTEOPOROSIS
  4. LEVOTHYROXINE SODIUM [Concomitant]
     Indication: HYPOTHYROIDISM
  5. ALENDRONIC ACID [Concomitant]
     Indication: OSTEOPOROSIS

REACTIONS (1)
  - SCIATICA [None]
